FAERS Safety Report 24459916 (Version 1)
Quarter: 2024Q4

REPORT INFORMATION
  Report Type: Report from Study
  Country: RO (occurrence: RO)
  Receive Date: 20241018
  Receipt Date: 20241018
  Transmission Date: 20250114
  Serious: No
  Sender: ROCHE
  Company Number: RO-ROCHE-3542436

PATIENT
  Age: 65 Year
  Sex: Female
  Weight: 61.0 kg

DRUGS (1)
  1. MABTHERA [Suspect]
     Active Substance: RITUXIMAB
     Indication: Rheumatoid arthritis
     Dosage: STRENGTH: 500MG/50ML, EVERY 6 MONTHS
     Route: 065

REACTIONS (1)
  - Arthralgia [Unknown]
